FAERS Safety Report 6187153-2 (Version None)
Quarter: 2009Q2

REPORT INFORMATION
  Report Type: 
  Country: None (occurrence: None)
  Receive Date: 20090508
  Receipt Date: 20090420
  Transmission Date: 20091009
  Serious: Yes (Other)
  Sender: FDA-Public Use
  Company Number: ZYD-09-AE-048

PATIENT
  Age: 57 Year
  Sex: Male

DRUGS (4)
  1. RIBAVIRIN [Suspect]
     Indication: HEPATITIS C
     Dosage: 1000MG, DIVIDED
     Dates: start: 20081003
  2. PEG-INTERFERON ALFA (ROCHE) [Suspect]
     Indication: HEPATITIS C
     Dosage: 180MCG, WEEKLY
     Dates: start: 20081003
  3. LEXAPRO [Concomitant]
  4. PROZAC [Suspect]

REACTIONS (1)
  - INFECTIVE THROMBOSIS [None]
